FAERS Safety Report 10022585 (Version 2)
Quarter: 2014Q2

REPORT INFORMATION
  Report Type: Spontaneous
  Country: US (occurrence: US)
  Receive Date: 20140319
  Receipt Date: 20140527
  Transmission Date: 20141212
  Serious: Yes (Hospitalization, Other)
  Sender: FDA-Public Use
  Company Number: US-BAXTER-2014BAX012700

PATIENT
  Sex: Male

DRUGS (5)
  1. DIANEAL LOW CALCIUM [Suspect]
     Indication: PERITONEAL DIALYSIS
     Route: 033
  2. DIANEAL LOW CALCIUM [Suspect]
     Indication: RENAL FAILURE CHRONIC
     Route: 033
     Dates: start: 2010, end: 201312
  3. DIANEAL LOW CALCIUM [Suspect]
     Route: 033
     Dates: start: 2010, end: 201312
  4. DIANEAL LOW CALCIUM [Suspect]
     Route: 033
     Dates: start: 201403
  5. DIANEAL LOW CALCIUM [Suspect]
     Route: 033
     Dates: start: 201403

REACTIONS (8)
  - Hip fracture [Recovering/Resolving]
  - Wound [Recovering/Resolving]
  - Extremity necrosis [Recovering/Resolving]
  - Viral infection [Recovered/Resolved]
  - Electrolyte imbalance [Recovered/Resolved]
  - Mental status changes [Recovered/Resolved]
  - Multimorbidity [Unknown]
  - Fall [Recovered/Resolved with Sequelae]
